FAERS Safety Report 11184652 (Version 2)
Quarter: 2015Q3

REPORT INFORMATION
  Report Type: Spontaneous
  Country: US (occurrence: US)
  Receive Date: 20150612
  Receipt Date: 20150708
  Transmission Date: 20151125
  Serious: Yes (Other)
  Sender: FDA-Public Use
  Company Number: US-AUROBINDO-AUR-APL-2015-04983

PATIENT
  Age: 47 Year
  Sex: Male

DRUGS (2)
  1. VANCOMYCIN [Concomitant]
     Active Substance: VANCOMYCIN
     Indication: SEPSIS
     Route: 065
  2. PIPERACILLIN AND TAZOBACTAM [Suspect]
     Active Substance: PIPERACILLIN SODIUM\TAZOBACTAM SODIUM
     Indication: SEPSIS
     Route: 065

REACTIONS (9)
  - Pulse absent [Unknown]
  - Anaemia [Unknown]
  - Haemolysis [Unknown]
  - Haemoglobin decreased [Unknown]
  - Antibody test positive [Unknown]
  - Brain injury [Unknown]
  - Haemoglobinuria [Unknown]
  - Histiocytosis haematophagic [Unknown]
  - Red blood cell agglutination [Unknown]
